FAERS Safety Report 24429245 (Version 2)
Quarter: 2025Q1

REPORT INFORMATION
  Report Type: Spontaneous
  Country: JP (occurrence: JP)
  Receive Date: 20241011
  Receipt Date: 20250117
  Transmission Date: 20250409
  Serious: Yes (Life-Threatening)
  Sender: ASTELLAS
  Company Number: JP-ASTELLAS-2024-AER-011104

PATIENT
  Age: 84 Year
  Sex: Male
  Weight: 54 kg

DRUGS (5)
  1. XTANDI [Suspect]
     Active Substance: ENZALUTAMIDE
     Indication: Prostate cancer metastatic
     Route: 048
     Dates: start: 20230404, end: 20240809
  2. AMIODARONE HYDROCHLORIDE [Suspect]
     Active Substance: AMIODARONE HYDROCHLORIDE
     Indication: Atrial fibrillation
     Route: 048
     Dates: start: 20240803, end: 20240809
  3. Bisoprolol Tables 0.625mg [Concomitant]
     Indication: Product used for unknown indication
     Dosage: 1 TABLET, AFTER BREAKFAST
     Route: 065
  4. Edoxaban Tablets 30mg [Concomitant]
     Indication: Product used for unknown indication
     Dosage: 1 TABLET, AFTER BREAKFAST
     Route: 065
  5. Landiolol intravenous for drip use [Concomitant]
     Indication: Product used for unknown indication
     Route: 065

REACTIONS (2)
  - Ventricular flutter [Recovered/Resolved]
  - Long QT syndrome [Recovering/Resolving]

NARRATIVE: CASE EVENT DATE: 20240804
